FAERS Safety Report 8195486-3 (Version None)
Quarter: 2012Q1

REPORT INFORMATION
  Report Type: 
  Country: None (occurrence: None)
  Receive Date: 20120308
  Receipt Date: 20120305
  Transmission Date: 20120608
  Serious: Yes (Death, Hospitalization, Other)
  Sender: FDA-Public Use
  Company Number: PHHO2011US16120

PATIENT
  Sex: Female
  Weight: 81.179 kg

DRUGS (14)
  1. METOPROLOL SUCCINATE [Concomitant]
  2. LASIX [Concomitant]
     Dosage: 40 U, UNK
  3. SIMVASTATIN [Concomitant]
     Dosage: 80 MG, UNK
  4. COLACE [Concomitant]
  5. ALISKIREN [Suspect]
     Indication: CARDIOVASCULAR DISORDER
     Dosage: 300 MG, UNK
     Route: 048
     Dates: start: 20090611
  6. COZAAR [Concomitant]
     Dosage: 100 MG, UNK
  7. NOVOLOG [Concomitant]
     Dosage: 20 U, UNK
  8. ALLOPURINOL [Concomitant]
  9. ASPIRIN [Concomitant]
  10. MORPHINE [Concomitant]
  11. AMLODIPINE [Concomitant]
     Dosage: 10 MG, UNK
  12. LANTUS [Concomitant]
     Dosage: 60 U, UNK
  13. NORCO [Concomitant]
  14. INSULIN [Concomitant]

REACTIONS (8)
  - DIABETIC GASTROPARESIS [None]
  - HYDRONEPHROSIS [None]
  - METASTASIS [None]
  - DUODENAL NEOPLASM [None]
  - ABDOMINAL PAIN [None]
  - HERPES ZOSTER [None]
  - PELVIC MASS [None]
  - OBSTRUCTION [None]
